FAERS Safety Report 14985937 (Version 1)
Quarter: 2018Q2

REPORT INFORMATION
  Report Type: Spontaneous
  Country: US (occurrence: US)
  Receive Date: 20180516
  Receipt Date: 20180516
  Transmission Date: 20180711
  Serious: Yes (Other)
  Sender: FDA-Public Use
  Company Number: None

PATIENT
  Age: 45 Year
  Sex: Male

DRUGS (1)
  1. CAPECITABINE 150MG TAB WEST-WARD PHARMACEUTICALS CORP [Suspect]
     Active Substance: CAPECITABINE
     Indication: COLON CANCER
     Dosage: 2450 MG TWICE A DAY FOR 14 DAYS, THEN OFF FOR 7, BY MOUTH
     Route: 048
     Dates: start: 20180403

REACTIONS (1)
  - Fatigue [None]

NARRATIVE: CASE EVENT DATE: 20180515
